FAERS Safety Report 5022312-3 (Version None)
Quarter: 2006Q2

REPORT INFORMATION
  Report Type: 
  Country: None (occurrence: None)
  Receive Date: 20060501
  Receipt Date: 20051118
  Transmission Date: 20061013
  Serious: Yes (Other)
  Sender: FDA-Public Use
  Company Number: 22611

PATIENT
  Age: 10 Year
  Sex: Male
  Weight: 50 kg

DRUGS (6)
  1. AMIKACIN SULFATE [Suspect]
     Indication: APPENDICITIS PERFORATED
     Dosage: 250 MG/Q8HRS/IV;650MG/Q 12 H
     Route: 042
     Dates: start: 20051112, end: 20051116
  2. CLONIDINE [Concomitant]
  3. METHADONE HCL [Concomitant]
  4. ATIVAN [Concomitant]
  5. ZANTAC [Concomitant]
  6. ZYPREXA [Concomitant]

REACTIONS (1)
  - WHITE BLOOD CELL COUNT DECREASED [None]
